FAERS Safety Report 19396971 (Version 2)
Quarter: 2021Q2

REPORT INFORMATION
  Report Type: Other
  Country: US (occurrence: US)
  Receive Date: 20210610
  Receipt Date: 20210616
  Transmission Date: 20210717
  Serious: Yes (Hospitalization)
  Sender: FDA-Public Use
  Company Number: US-INTERCEPT-PM2021001875

PATIENT
  Sex: Female

DRUGS (9)
  1. OCALIVA [Suspect]
     Active Substance: OBETICHOLIC ACID
     Indication: PRIMARY BILIARY CHOLANGITIS
     Dosage: 5 MILLIGRAM
     Route: 048
     Dates: start: 20201106
  2. OCALIVA [Suspect]
     Active Substance: OBETICHOLIC ACID
     Dosage: 10 MILLIGRAM, QD
     Route: 048
     Dates: start: 20210217
  3. CIPROFLOXACIN. [Concomitant]
     Active Substance: CIPROFLOXACIN
  4. ONDANSETRON [Concomitant]
     Active Substance: ONDANSETRON
  5. SIMVASTATIN. [Concomitant]
     Active Substance: SIMVASTATIN
  6. URSODIOL. [Concomitant]
     Active Substance: URSODIOL
  7. LEVOTHYROXIN [Concomitant]
     Active Substance: LEVOTHYROXINE
  8. APAP/CODEINE [CODEINE PHOSPHATE;PARACETAMOL] [Concomitant]
  9. DONEPEZIL. [Concomitant]
     Active Substance: DONEPEZIL

REACTIONS (4)
  - Product dose omission issue [Unknown]
  - Breast mass [Recovered/Resolved]
  - Vomiting [Recovered/Resolved]
  - Breast conserving surgery [Recovered/Resolved]
